FAERS Safety Report 9543282 (Version 1)
Quarter: 2013Q2

REPORT INFORMATION
  Report Type: Spontaneous
  Country: US (occurrence: None)
  Receive Date: 20130524
  Receipt Date: 20130524
  Transmission Date: 20140414
  Serious: No
  Sender: FDA-Public Use
  Company Number: PHEH2012US025013

PATIENT
  Age: 58 Year
  Sex: Female

DRUGS (1)
  1. GILENYA (FINGOLIMOD) CAPSULE, 0.5MG [Suspect]
     Indication: MULTIPLE SCLEROSIS
     Route: 048
     Dates: start: 20121102

REACTIONS (9)
  - Muscle spasticity [None]
  - Ligament sprain [None]
  - Fall [None]
  - Vertigo [None]
  - Dyspnoea [None]
  - Diarrhoea [None]
  - Heart rate decreased [None]
  - Muscle spasms [None]
  - Balance disorder [None]
